FAERS Safety Report 17488198 (Version 1)
Quarter: 2020Q1

REPORT INFORMATION
  Report Type: Spontaneous
  Country: US (occurrence: US)
  Receive Date: 20200302
  Receipt Date: 20200302
  Transmission Date: 20200409
  Serious: No
  Sender: FDA-Public Use
  Company Number: None

PATIENT
  Age: 74 Year
  Sex: Female
  Weight: 54 kg

DRUGS (9)
  1. LOSARTAN. [Concomitant]
     Active Substance: LOSARTAN
  2. CLOPIDOGRE [Concomitant]
  3. MULTIPLE VITAMIN [Concomitant]
     Active Substance: VITAMINS
  4. ASPIRIN 81MG [Concomitant]
     Active Substance: ASPIRIN
  5. PACEMAKER [Concomitant]
     Active Substance: DEVICE
  6. CALCIUM CITRATE W/VITAMIN D [Concomitant]
     Active Substance: CALCIUM CITRATE\VITAMIN D
  7. FLECAINIDE 50 MG TAB AMN NDC53746-0641-01 [Suspect]
     Active Substance: FLECAINIDE ACETATE
     Indication: HEART RATE ABNORMAL
     Dosage: ?          QUANTITY:60 TABLET(S);?
     Route: 048
     Dates: start: 20200128, end: 20200212
  8. CARVEDILO [Concomitant]
     Active Substance: CARVEDILOL
  9. TIMOLOL. [Concomitant]
     Active Substance: TIMOLOL

REACTIONS (2)
  - Quality of life decreased [None]
  - Dizziness [None]

NARRATIVE: CASE EVENT DATE: 20200210
